FAERS Safety Report 8901429 (Version 1)
Quarter: 2012Q4

REPORT INFORMATION
  Report Type: 
  Country: US (occurrence: US)
  Receive Date: 20121108
  Receipt Date: 20121108
  Transmission Date: 20130627
  Serious: Yes (Other)
  Sender: FDA-Public Use
  Company Number: US-009507513-1211USA002824

PATIENT

DRUGS (2)
  1. SINGULAIR [Suspect]
  2. ADVAIR [Concomitant]
     Dosage: UNK

REACTIONS (5)
  - Suicide attempt [Unknown]
  - Aggression [Unknown]
  - Insomnia [Unknown]
  - Nightmare [Unknown]
  - Depression [Unknown]
